FAERS Safety Report 15225142 (Version 1)
Quarter: 2018Q3

REPORT INFORMATION
  Report Type: Report from Study
  Country: None (occurrence: US)
  Receive Date: 20180801
  Receipt Date: 20180801
  Transmission Date: 20181010
  Serious: Yes (Other)
  Sender: FDA-Public Use
  Company Number: US-ABBVIE-18K-163-2389752-00

PATIENT
  Age: 50 Year
  Sex: Female
  Weight: 96.25 kg

DRUGS (1)
  1. HUMIRA [Suspect]
     Active Substance: ADALIMUMAB
     Indication: PSORIASIS
     Route: 058
     Dates: start: 201801, end: 201805

REACTIONS (5)
  - Uterine cancer [Recovering/Resolving]
  - Abdominal pain [Recovering/Resolving]
  - Ovarian cancer [Recovering/Resolving]
  - Procedural pain [Recovering/Resolving]
  - Haemorrhage [Recovering/Resolving]

NARRATIVE: CASE EVENT DATE: 201803
